FAERS Safety Report 8842789 (Version 2)
Quarter: 2012Q4

REPORT INFORMATION
  Report Type: 
  Country: US (occurrence: US)
  Receive Date: 20121016
  Receipt Date: 20121126
  Transmission Date: 20130627
  Serious: Yes (Hospitalization, Other)
  Sender: FDA-Public Use
  Company Number: US-ELI_LILLY_AND_COMPANY-US201207007595

PATIENT
  Age: 65 Year
  Sex: Female
  Weight: 38.1 kg

DRUGS (5)
  1. FORTEO [Suspect]
     Indication: OSTEOPOROSIS
     Dosage: 20 ug, qd
  2. FORTEO [Suspect]
     Dosage: 20 ug, qd
  3. MULTIVITAMIN [Concomitant]
     Dosage: UNK
  4. ZINC SULFATE [Concomitant]
     Dosage: UNK
  5. POTASSIUM [Concomitant]
     Dosage: UNK

REACTIONS (14)
  - Road traffic accident [Recovering/Resolving]
  - Hip fracture [Recovering/Resolving]
  - Wrist fracture [Recovering/Resolving]
  - Haemorrhage [Unknown]
  - Nervousness [Unknown]
  - Tension [Unknown]
  - Injection site bruising [Unknown]
  - Anxiety [Unknown]
  - Scratch [Unknown]
  - Mass [Unknown]
  - Contusion [Unknown]
  - Pain [Unknown]
  - Back pain [Unknown]
  - Fracture [Not Recovered/Not Resolved]
